FAERS Safety Report 8916723 (Version 1)
Quarter: 2012Q4

REPORT INFORMATION
  Report Type: 
  Country: US (occurrence: US)
  Receive Date: 20121120
  Receipt Date: 20121120
  Transmission Date: 20130627
  Serious: Yes (Hospitalization, Other)
  Sender: FDA-Public Use
  Company Number: US-BAYER-2012-118351

PATIENT
  Age: 22 Year
  Sex: Female

DRUGS (6)
  1. MOXIFLOXACIN ORAL [Suspect]
     Indication: EAR PAIN
     Dosage: 400 mg daily
  2. PREDNISONE [Suspect]
     Indication: CHRONIC MASTOIDITIS
     Dosage: 10 mg, QOD
  3. PREDNISONE [Suspect]
     Indication: CHRONIC MASTOIDITIS
     Dosage: 60 mg daily
  4. RITUXIMAB [Suspect]
     Indication: CHRONIC MASTOIDITIS
     Dosage: 375 mg/m2, Q1MON
  5. PYRIDOSTIGMINE BROMIDE [Concomitant]
     Indication: CHRONIC MASTOIDITIS
     Dosage: 180 mg daily
  6. CLINDAMYCIN [Concomitant]
     Indication: PURULENT DISCHARGE
     Dosage: 300 mg, TID

REACTIONS (3)
  - Myasthenia gravis [None]
  - Hypogammaglobulinaemia [Recovered/Resolved]
  - Mastoiditis [Recovered/Resolved]
